FAERS Safety Report 7539595-8 (Version None)
Quarter: 2011Q2

REPORT INFORMATION
  Report Type: 
  Country: None (occurrence: None)
  Receive Date: 20110610
  Receipt Date: 20110103
  Transmission Date: 20111010
  Serious: Yes (Hospitalization, Other)
  Sender: FDA-Public Use
  Company Number: US-BAYER-201031741NA

PATIENT
  Age: 40 Year
  Sex: Female
  Weight: 110 kg

DRUGS (17)
  1. CYMBALTA [Concomitant]
     Indication: DEPRESSION
  2. ATIVAN [Concomitant]
     Indication: DEPRESSION
     Dates: start: 20060101, end: 20090615
  3. ANTIBIOTICS [Concomitant]
     Dates: start: 20060928
  4. LEXAPRO [Concomitant]
     Indication: DEPRESSION
  5. HYDROCODONE BITARTRATE AND ACETAMINOPHEN [Concomitant]
     Indication: PAIN
     Dosage: UNK UNK, PRN
     Route: 048
     Dates: start: 20060923
  6. HYDROCODONE BITARTRATE AND ACETAMINOPHEN [Concomitant]
     Dosage: UNK
     Route: 048
     Dates: start: 20060930
  7. BENZONATATE [Concomitant]
     Dosage: 100 MG, PRN
     Route: 048
     Dates: start: 20060924
  8. DIOVAN [Concomitant]
     Indication: HYPERTENSION
     Dates: start: 20060101
  9. TUSSIONEX [HYDROCODONE,PHENYLTOLOXAMINE] [Concomitant]
     Dates: start: 20060930
  10. AMBIEN [Concomitant]
     Indication: INSOMNIA
     Dates: start: 20060101
  11. TUSSIONEX [Concomitant]
     Indication: COUGH
     Dates: start: 20060930
  12. MAXALT [Concomitant]
     Indication: MIGRAINE
     Dates: start: 20050101, end: 20090615
  13. CHERATUSSIN AC [Concomitant]
     Dosage: 10 MG, PRN
     Route: 048
     Dates: start: 20060923
  14. YASMIN [Suspect]
     Route: 048
     Dates: start: 20060901, end: 20060930
  15. CELEBREX [Concomitant]
     Indication: PAIN
     Dates: start: 20050101, end: 20060615
  16. ANTIBIOTICS [Concomitant]
     Dates: start: 20060928
  17. WELLBUTRIN [Concomitant]
     Indication: DEPRESSION

REACTIONS (2)
  - DEEP VEIN THROMBOSIS [None]
  - PAIN IN EXTREMITY [None]
